FAERS Safety Report 25546535 (Version 2)
Quarter: 2025Q3

REPORT INFORMATION
  Report Type: Report from Study
  Country: US (occurrence: US)
  Receive Date: 20250713
  Receipt Date: 20250812
  Transmission Date: 20251020
  Serious: Yes (Hospitalization, Other)
  Sender: ABBVIE
  Company Number: US-ABBVIE-6365276

PATIENT
  Age: 73 Year
  Sex: Female

DRUGS (2)
  1. RINVOQ [Suspect]
     Active Substance: UPADACITINIB
     Indication: Crohn^s disease
     Route: 048
     Dates: start: 20250225, end: 20250302
  2. RINVOQ [Suspect]
     Active Substance: UPADACITINIB
     Indication: Crohn^s disease
     Route: 048
     Dates: start: 2025

REACTIONS (5)
  - Pelvic fracture [Unknown]
  - Hip fracture [Unknown]
  - Stent placement [Unknown]
  - Fall [Unknown]
  - Haematoma [Unknown]

NARRATIVE: CASE EVENT DATE: 20250101
